FAERS Safety Report 8811658 (Version 1)
Quarter: 2012Q4

REPORT INFORMATION
  Report Type: 
  Country: US (occurrence: US)
  Receive Date: 20120927
  Receipt Date: 20120927
  Transmission Date: 20130627
  Serious: Yes (Other)
  Sender: FDA-Public Use
  Company Number: US-MUTUAL PHARMACEUTICAL COMPANY, INC.-BCTM20110056

PATIENT

DRUGS (4)
  1. BACTRIM [Suspect]
     Indication: URINARY TRACT INFECTION
     Route: 065
  2. BACTRIM [Suspect]
     Indication: KIDNEY INFECTION
  3. AMOXICILLIN [Concomitant]
     Indication: URINARY TRACT INFECTION
     Route: 065
  4. AMOXICILLIN [Concomitant]
     Indication: KIDNEY INFECTION

REACTIONS (4)
  - Urticaria [Unknown]
  - Throat tightness [Unknown]
  - Lip swelling [None]
  - Drug hypersensitivity [Unknown]
